FAERS Safety Report 9938572 (Version 3)
Quarter: 2014Q1

REPORT INFORMATION
  Report Type: Spontaneous
  Country: US (occurrence: US)
  Receive Date: 20140303
  Receipt Date: 20140331
  Transmission Date: 20141002
  Serious: No
  Sender: FDA-Public Use
  Company Number: US-009507513-1402USA008993

PATIENT
  Sex: Male

DRUGS (2)
  1. COZAAR [Suspect]
     Indication: HYPERTENSION
     Dosage: 50 MG, QD
     Route: 048
  2. LIPITOR [Concomitant]
     Dosage: UNK

REACTIONS (2)
  - Dizziness [Recovered/Resolved]
  - Blood pressure increased [Recovered/Resolved]
